FAERS Safety Report 4785489-0 (Version None)
Quarter: 2005Q3

REPORT INFORMATION
  Report Type: 
  Country: None (occurrence: None)
  Receive Date: 20050929
  Receipt Date: 20050922
  Transmission Date: 20060218
  Serious: Yes (Life-Threatening, Hospitalization)
  Sender: FDA-Public Use
  Company Number: 6017519

PATIENT
  Age: 75 Year
  Sex: Male

DRUGS (4)
  1. EMCONOR (BISOPROLOL FUMARATE) [Suspect]
     Dosage: 10,000 MG (10 MG, 1 IN 1 D) ORAL
     Route: 048
     Dates: start: 20040401, end: 20040401
  2. ISCOVER (CLOPIDOGREL SULFATE) [Suspect]
     Dosage: 75,000 MG, (75 MG, 1 IN 1 D) ORAL
     Route: 048
     Dates: start: 20040401
  3. RAMIPRIL [Suspect]
     Dosage: 2,500 MG (2,5 MG, 1 IN 1 D), ORAL
     Route: 048
     Dates: start: 20040401
  4. ZOCOR [Suspect]
     Dosage: 20,000 MG (20 MG, 1 IN 1 D), ORAL
     Route: 048
     Dates: start: 20040401

REACTIONS (1)
  - GASTROINTESTINAL HAEMORRHAGE [None]
